FAERS Safety Report 5419480-8 (Version None)
Quarter: 2007Q3

REPORT INFORMATION
  Report Type: 
  Country: None (occurrence: None)
  Receive Date: 20070817
  Receipt Date: 20070817
  Transmission Date: 20080115
  Serious: Yes (Hospitalization)
  Sender: FDA-Public Use
  Company Number: None

PATIENT
  Age: 69 Year
  Sex: Male

DRUGS (9)
  1. LOVENOX [Suspect]
     Indication: CEREBROVASCULAR ACCIDENT
     Dosage: 40 MG BID SQ
     Route: 058
     Dates: start: 20060721, end: 20060801
  2. HEPARIN [Suspect]
     Indication: CEREBROVASCULAR ACCIDENT
     Dosage: 5000 UNITS BID SQ
     Route: 058
     Dates: start: 20060801, end: 20060814
  3. PROTONIX [Concomitant]
  4. AVELOX [Concomitant]
  5. ALBUTEROL INHALERS [Concomitant]
  6. ASPIRIN [Concomitant]
  7. PLAVIX [Concomitant]
  8. SIMVASTATIN [Concomitant]
  9. TYLENOL [Concomitant]

REACTIONS (1)
  - INJECTION SITE HAEMORRHAGE [None]
